FAERS Safety Report 5522441-1 (Version None)
Quarter: 2007Q4

REPORT INFORMATION
  Report Type: 
  Country: None (occurrence: None)
  Receive Date: 20071120
  Receipt Date: 20071109
  Transmission Date: 20080405
  Serious: Yes (Other)
  Sender: FDA-Public Use
  Company Number: PHBS2007JP11478

PATIENT
  Age: 60 Year
  Sex: Female

DRUGS (5)
  1. AREDIA [Suspect]
     Indication: METASTASES TO BONE
     Route: 042
  2. TRASTUZUMAB [Concomitant]
  3. CYCLOPHOSPHAMIDE [Concomitant]
  4. DOXIFLURIDINE [Concomitant]
  5. ZOMETA [Suspect]
     Route: 042

REACTIONS (7)
  - CELLULITIS [None]
  - GINGIVITIS [None]
  - OSTEONECROSIS [None]
  - PERIODONTITIS [None]
  - PRIMARY SEQUESTRUM [None]
  - PURULENCE [None]
  - TOOTH EXTRACTION [None]
